FAERS Safety Report 23677772 (Version 1)
Quarter: 2024Q1

REPORT INFORMATION
  Report Type: Spontaneous
  Country: US (occurrence: US)
  Receive Date: 20240327
  Receipt Date: 20240327
  Transmission Date: 20240410
  Serious: Yes (Other)
  Sender: FDA-Public Use
  Company Number: US-PFIZER INC-PV202300200017

PATIENT
  Age: 71 Year
  Sex: Female
  Weight: 73.469 kg

DRUGS (4)
  1. IBRANCE [Suspect]
     Active Substance: PALBOCICLIB
     Indication: Breast cancer
     Dosage: 125 MG DAILY DAYS 1-21 EVERY 28 DAYS
     Dates: start: 20231107
  2. IBRANCE [Suspect]
     Active Substance: PALBOCICLIB
     Dosage: 1 TABLET, 100 MG ONCE A DAY D1 THROUGH DAY 21 EVERY 28-DAY CYCLE
     Route: 048
  3. IBRANCE [Suspect]
     Active Substance: PALBOCICLIB
     Indication: Breast cancer
     Dosage: 75 MG CAPSULE, 1 CAP ONCE A DAY
     Route: 048
  4. FASLODEX [Concomitant]
     Active Substance: FULVESTRANT
     Indication: Breast cancer
     Dosage: CYCLIC (EVERY 4 WEEKS AFTER INITIAL LOADING DOSE)
     Dates: start: 20231107

REACTIONS (5)
  - Cytopenia [Unknown]
  - Oxygen saturation decreased [Unknown]
  - Mean cell haemoglobin increased [Unknown]
  - Red cell distribution width increased [Unknown]
  - Basophil percentage increased [Unknown]
